FAERS Safety Report 21585194 (Version 1)
Quarter: 2022Q4

REPORT INFORMATION
  Report Type: Spontaneous
  Country: US (occurrence: US)
  Receive Date: 20221111
  Receipt Date: 20221111
  Transmission Date: 20230113
  Serious: No
  Sender: FDA-Public Use
  Company Number: US-NOVOPROD-940462

PATIENT
  Sex: Female
  Weight: 54.431 kg

DRUGS (3)
  1. TRESIBA [Suspect]
     Active Substance: INSULIN DEGLUDEC
     Indication: Type 1 diabetes mellitus
     Dosage: 8 UNITS DAILY
     Route: 058
     Dates: start: 2014
  2. NOVOLOG [Concomitant]
     Active Substance: INSULIN ASPART
     Indication: Type 1 diabetes mellitus
     Route: 058
  3. DEVICE [Concomitant]
     Active Substance: DEVICE
     Indication: Type 2 diabetes mellitus
     Route: 058

REACTIONS (4)
  - Insulin resistance [Unknown]
  - Blood glucose decreased [Unknown]
  - Device malfunction [Not Recovered/Not Resolved]
  - Device issue [Not Recovered/Not Resolved]

NARRATIVE: CASE EVENT DATE: 20220701
